FAERS Safety Report 24612503 (Version 2)
Quarter: 2025Q3

REPORT INFORMATION
  Report Type: Report from Study
  Country: AE (occurrence: AE)
  Receive Date: 20241113
  Receipt Date: 20250803
  Transmission Date: 20251020
  Serious: Yes (Hospitalization, Other)
  Sender: ALEXION PHARMACEUTICALS
  Company Number: AE-AstraZeneca-CH-00735516A

PATIENT
  Sex: Female

DRUGS (2)
  1. FULVESTRANT [Suspect]
     Active Substance: FULVESTRANT
     Dates: start: 202207
  2. FULVESTRANT [Suspect]
     Active Substance: FULVESTRANT

REACTIONS (1)
  - Malaria [Recovered/Resolved]

NARRATIVE: CASE EVENT DATE: 20241001
